FAERS Safety Report 17642883 (Version 1)
Quarter: 2020Q2

REPORT INFORMATION
  Report Type: Spontaneous
  Country: US (occurrence: US)
  Receive Date: 20200407
  Receipt Date: 20200407
  Transmission Date: 20200713
  Serious: No
  Sender: FDA-Public Use
  Company Number: None

PATIENT

DRUGS (1)
  1. ABILIFY MAINTENA [Suspect]
     Active Substance: ARIPIPRAZOLE
     Dosage: ?          OTHER FREQUENCY:EVERY 21 DAYS;?
     Route: 030
     Dates: start: 201704

REACTIONS (1)
  - Off label use [None]

NARRATIVE: CASE EVENT DATE: 20200407
